FAERS Safety Report 6234779-3 (Version None)
Quarter: 2009Q2

REPORT INFORMATION
  Report Type: 
  Country: None (occurrence: None)
  Receive Date: 20090618
  Receipt Date: 20090610
  Transmission Date: 20091009
  Serious: Yes (Disabling)
  Sender: FDA-Public Use
  Company Number: PHHO2009IT07253

PATIENT
  Sex: Female
  Weight: 89 kg

DRUGS (3)
  1. ZOLEDRONIC ACID [Suspect]
     Indication: METASTASES TO BONE
     Dosage: 4 MG, EVERY 3 MONTHS
     Route: 042
     Dates: start: 20080402, end: 20081210
  2. VITAMIN D [Concomitant]
  3. CALCIUM [Concomitant]

REACTIONS (3)
  - BONE FRAGMENTATION [None]
  - OSTEONECROSIS [None]
  - TOOTH EXTRACTION [None]
